FAERS Safety Report 7754306-9 (Version None)
Quarter: 2011Q3

REPORT INFORMATION
  Report Type: 
  Country: None (occurrence: None)
  Receive Date: 20110915
  Receipt Date: 20110902
  Transmission Date: 20111222
  Serious: Yes (Hospitalization)
  Sender: FDA-Public Use
  Company Number: SG-BAYER-2011-080301

PATIENT
  Age: 79 Year
  Sex: Male

DRUGS (3)
  1. ASPIRIN [Suspect]
     Dosage: DAILY DOSE 100 MG
     Dates: start: 20110716, end: 20110725
  2. OMEPRAZOLE [Concomitant]
     Dosage: 20 MG, QD
     Dates: start: 20110722, end: 20110725
  3. ATORVASTATIN [Concomitant]
     Dosage: 80 MG, QD
     Dates: start: 20110716, end: 20110722

REACTIONS (1)
  - ANGIOEDEMA [None]
